FAERS Safety Report 7007027-4 (Version None)
Quarter: 2010Q3

REPORT INFORMATION
  Report Type: 
  Country: None (occurrence: None)
  Receive Date: 20100913
  Receipt Date: 20100810
  Transmission Date: 20110219
  Serious: Yes (Death)
  Sender: FDA-Public Use
  Company Number: 2010SP043239

PATIENT
  Age: 11 Year
  Sex: Male

DRUGS (2)
  1. ALBUTEROL [Suspect]
     Indication: ASTHMA
     Dosage: INH
     Route: 055
  2. SINGULAIR [Suspect]
     Indication: ASTHMA

REACTIONS (1)
  - ASTHMA [None]
